FAERS Safety Report 4337367-9 (Version None)
Quarter: 2004Q2

REPORT INFORMATION
  Report Type: 
  Country: None (occurrence: None)
  Receive Date: 20040413
  Receipt Date: 20040405
  Transmission Date: 20050107
  Serious: Yes (Death, Life-Threatening)
  Sender: FDA-Public Use
  Company Number: 200411410FR

PATIENT
  Age: 58 Year
  Sex: Female

DRUGS (5)
  1. LASILIX 40 MG [Suspect]
     Indication: ESSENTIAL HYPERTENSION
     Route: 048
  2. TAREG [Suspect]
     Indication: ESSENTIAL HYPERTENSION
     Route: 048
  3. CORDARONE [Suspect]
     Indication: ATRIAL FIBRILLATION
     Route: 048
  4. CALCIPARINE [Concomitant]
     Route: 042
     Dates: start: 20020901
  5. PREVISCAN 20 MG [Concomitant]
     Route: 048
     Dates: end: 20020831

REACTIONS (5)
  - BLOOD CALCIUM INCREASED [None]
  - EXTENSOR PLANTAR RESPONSE [None]
  - HAEMORRHAGE INTRACRANIAL [None]
  - HYDROCEPHALUS [None]
  - THROMBOCYTOPENIA [None]
